FAERS Safety Report 5339082-1 (Version None)
Quarter: 2007Q2

REPORT INFORMATION
  Report Type: 
  Country: None (occurrence: None)
  Receive Date: 20070530
  Receipt Date: 20070518
  Transmission Date: 20071010
  Serious: Yes (Other)
  Sender: FDA-Public Use
  Company Number: JP-PFIZER INC-2007040643

PATIENT
  Sex: Male

DRUGS (3)
  1. LIPITOR [Suspect]
     Indication: HYPERLIPIDAEMIA
     Dosage: FREQ:DAILY
     Route: 048
     Dates: start: 20070320, end: 20070502
  2. BAKTAR [Suspect]
     Indication: LYMPHOMA
     Dosage: FREQ:DAILY
     Route: 048
     Dates: start: 20061208, end: 20070502
  3. HUMALOG MIX [Concomitant]
     Dosage: DAILY DOSE:12I.U.-FREQ:DAILY
     Route: 058

REACTIONS (1)
  - AGRANULOCYTOSIS [None]
